FAERS Safety Report 7126341-5 (Version None)
Quarter: 2010Q4

REPORT INFORMATION
  Report Type: 
  Country: None (occurrence: None)
  Receive Date: 20101112
  Receipt Date: 20101102
  Transmission Date: 20110411
  Serious: Yes (Hospitalization, Other)
  Sender: FDA-Public Use
  Company Number: 2010US004558

PATIENT
  Age: 58 Year
  Sex: Male

DRUGS (7)
  1. PROGRAF [Suspect]
     Indication: PRODUCT USED FOR UNKNOWN INDICATION
  2. METHYLPREDNISOLONE [Concomitant]
  3. PREDNISONE TAB [Concomitant]
  4. METHOTREXATE [Concomitant]
  5. IMMUNE GLOBULIN (HUMAN) [Concomitant]
  6. HYDROCHLOROTHIAZIDE [Concomitant]
  7. PENTAMIDINE (PENTAMIDINE) AEROSOL [Concomitant]

REACTIONS (23)
  - ANAEMIA [None]
  - ANTINUCLEAR ANTIBODY POSITIVE [None]
  - BLOOD CREATINE PHOSPHOKINASE INCREASED [None]
  - BLOOD PRESSURE SYSTOLIC INCREASED [None]
  - DEEP VEIN THROMBOSIS [None]
  - DIALYSIS [None]
  - DRUG TOXICITY [None]
  - HAEMOLYTIC URAEMIC SYNDROME [None]
  - HAEMOPTYSIS [None]
  - HEART RATE INCREASED [None]
  - INCORRECT DOSE ADMINISTERED [None]
  - LEUKOCYTOSIS [None]
  - LUNG CONSOLIDATION [None]
  - LUNG INFILTRATION [None]
  - MYOGLOBINURIA [None]
  - OEDEMA PERIPHERAL [None]
  - PNEUMONIA [None]
  - RALES [None]
  - RENAL FAILURE [None]
  - RENAL TUBULAR NECROSIS [None]
  - THROMBOCYTOPENIA [None]
  - THROMBOTIC MICROANGIOPATHY [None]
  - THROMBOTIC THROMBOCYTOPENIC PURPURA [None]
